FAERS Safety Report 24994579 (Version 2)
Quarter: 2025Q1

REPORT INFORMATION
  Report Type: Report from Study
  Country: GB (occurrence: GB)
  Receive Date: 20250221
  Receipt Date: 20250226
  Transmission Date: 20250409
  Serious: Yes (Other)
  Sender: TAKEDA
  Company Number: GB-TAKEDA-2023TUS033409

PATIENT
  Sex: Female

DRUGS (2)
  1. VEDOLIZUMAB [Suspect]
     Active Substance: VEDOLIZUMAB
     Indication: Colitis ulcerative
     Dosage: 108 MILLIGRAM, Q2WEEKS
     Dates: start: 20230329
  2. VEDOLIZUMAB [Suspect]
     Active Substance: VEDOLIZUMAB

REACTIONS (10)
  - Diverticulitis [Unknown]
  - Pancreatitis [Unknown]
  - Colitis ulcerative [Unknown]
  - Drug effect less than expected [Not Recovered/Not Resolved]
  - Anaemia [Not Recovered/Not Resolved]
  - Rash macular [Unknown]
  - Drug level decreased [Unknown]
  - Product dose omission issue [Unknown]
  - Nausea [Unknown]
  - Pruritus [Unknown]
